FAERS Safety Report 12897678 (Version 1)
Quarter: 2016Q4

REPORT INFORMATION
  Report Type: Report from Study
  Country: FR (occurrence: FR)
  Receive Date: 20161031
  Receipt Date: 20161031
  Transmission Date: 20170207
  Serious: Yes (Hospitalization, Other)
  Sender: FDA-Public Use
  Company Number: FR-PFIZER INC-2016503938

PATIENT
  Age: 26 Year
  Sex: Female
  Weight: 50 kg

DRUGS (2)
  1. MIFEGYNE [Suspect]
     Active Substance: MIFEPRISTONE
     Indication: ABORTION INDUCED
     Dosage: 600 MG, SINGLE
     Route: 048
     Dates: start: 20111120, end: 20111120
  2. CYTOTEC [Suspect]
     Active Substance: MISOPROSTOL
     Indication: ABORTION INDUCED
     Dosage: 400 UG, SINGLE
     Route: 048
     Dates: start: 20111122, end: 20111122

REACTIONS (3)
  - Metrorrhagia [Recovered/Resolved]
  - Drug ineffective for unapproved indication [Unknown]
  - Haemorrhagic anaemia [Recovering/Resolving]

NARRATIVE: CASE EVENT DATE: 20111122
